FAERS Safety Report 4293998-6 (Version None)
Quarter: 2004Q1

REPORT INFORMATION
  Report Type: 
  Country: None (occurrence: None)
  Receive Date: 20040212
  Receipt Date: 20040209
  Transmission Date: 20041129
  Serious: Yes (Disabling, Other)
  Sender: FDA-Public Use
  Company Number: WAES 0402GBR00105

PATIENT
  Age: 41 Year
  Sex: Male

DRUGS (2)
  1. MELOXICAM [Concomitant]
     Dates: start: 20040130
  2. VIOXX [Suspect]
     Indication: PSORIATIC ARTHROPATHY
     Route: 048
     Dates: start: 20030807, end: 20040115

REACTIONS (1)
  - MEMORY IMPAIRMENT [None]
